FAERS Safety Report 23169988 (Version 1)
Quarter: 2023Q4

REPORT INFORMATION
  Report Type: Spontaneous
  Country: US (occurrence: US)
  Receive Date: 20231110
  Receipt Date: 20231110
  Transmission Date: 20240110
  Serious: Yes (Other)
  Sender: FDA-Public Use
  Company Number: US-ASTELLAS-2023EU004164

PATIENT
  Age: 53 Year

DRUGS (4)
  1. TACROLIMUS [Suspect]
     Active Substance: TACROLIMUS
     Indication: Renal transplant
     Dosage: TROUGH 10-15 NG/ML FOR THREE MONTHS
     Route: 065
  2. MYCOPHENOLATE MOFETIL [Concomitant]
     Active Substance: MYCOPHENOLATE MOFETIL
     Indication: Renal transplant
     Route: 065
  3. BELATACEPT [Concomitant]
     Active Substance: BELATACEPT
     Indication: Renal transplant
     Dosage: 5 MG/KG, EVERY 2 WEEKS (X 3 DOSES)
     Route: 065
  4. BELATACEPT [Concomitant]
     Active Substance: BELATACEPT
     Route: 065

REACTIONS (1)
  - Toxicity to various agents [Unknown]
